FAERS Safety Report 6193670-1 (Version None)
Quarter: 2009Q2

REPORT INFORMATION
  Report Type: 
  Country: None (occurrence: None)
  Receive Date: 20090518
  Receipt Date: 20090506
  Transmission Date: 20091009
  Serious: Yes (Other)
  Sender: FDA-Public Use
  Company Number: US-PFIZER INC-2006000749

PATIENT
  Sex: Female

DRUGS (8)
  1. PROVERA [Suspect]
     Indication: HORMONE REPLACEMENT THERAPY
     Dosage: 10 MG, UNK
     Route: 048
     Dates: start: 19930101, end: 19970123
  2. PROVERA [Suspect]
     Dosage: 10 MG, UNK
     Route: 048
     Dates: start: 19981007, end: 20001001
  3. MEDROXYPROGESTERONE AND MEDROXYPROGESTERONE ACETATE [Suspect]
     Indication: HORMONE REPLACEMENT THERAPY
     Dosage: 10 MG, UNK
     Route: 048
     Dates: start: 19930101, end: 19970123
  4. MEDROXYPROGESTERONE AND MEDROXYPROGESTERONE ACETATE [Suspect]
     Dosage: 10 MG, UNK
     Route: 048
     Dates: start: 19981007, end: 20001001
  5. CYCRIN [Suspect]
     Indication: HORMONE REPLACEMENT THERAPY
     Dosage: 10 MG, UNK
     Route: 065
     Dates: start: 19970124, end: 19970730
  6. PREMPRO [Suspect]
     Indication: HORMONE REPLACEMENT THERAPY
     Dosage: UNK
     Route: 065
     Dates: start: 19970731, end: 19981006
  7. MEDROXYPROGESTERONE ACETATE [Suspect]
     Indication: HORMONE REPLACEMENT THERAPY
     Dosage: 10 MG, UNK
     Dates: start: 19930101, end: 19970101
  8. MEDROXYPROGESTERONE ACETATE [Suspect]
     Dosage: 10 MG, UNK
     Dates: start: 19981001, end: 20001001

REACTIONS (1)
  - BREAST CANCER FEMALE [None]
